FAERS Safety Report 8904800 (Version 1)
Quarter: 2012Q4

REPORT INFORMATION
  Report Type: 
  Country: CA (occurrence: CA)
  Receive Date: 20121109
  Receipt Date: 20121109
  Transmission Date: 20130627
  Serious: Yes (Other)
  Sender: FDA-Public Use
  Company Number: CA-ASTRAZENECA-2012SE83683

PATIENT
  Age: 55 Year
  Sex: Female
  Weight: 54 kg

DRUGS (3)
  1. LOSEC [Suspect]
     Route: 048
  2. LOSEC [Suspect]
     Route: 048
  3. PANTODAC [Suspect]
     Route: 048

REACTIONS (5)
  - Anxiety [Recovered/Resolved]
  - Oesophageal pain [Recovered/Resolved]
  - Oropharyngeal pain [Recovered/Resolved]
  - Tremor [Recovered/Resolved]
  - Abdominal pain upper [Recovered/Resolved]
